FAERS Safety Report 11066755 (Version 2)
Quarter: 2015Q2

REPORT INFORMATION
  Report Type: Spontaneous
  Country: US (occurrence: US)
  Receive Date: 20150425
  Receipt Date: 20150525
  Transmission Date: 20150821
  Serious: No
  Sender: FDA-Public Use
  Company Number: US-JNJFOC-20150322275

PATIENT
  Age: 47 Year
  Sex: Female
  Weight: 77.11 kg

DRUGS (11)
  1. LEXAPRO [Concomitant]
     Active Substance: ESCITALOPRAM OXALATE
     Indication: DEPRESSION
     Route: 065
     Dates: start: 201411
  2. MOBIC [Concomitant]
     Active Substance: MELOXICAM
     Route: 065
  3. TRAZODONE [Concomitant]
     Active Substance: TRAZODONE HYDROCHLORIDE
     Indication: SLEEP DISORDER
     Route: 065
  4. RELPAX [Concomitant]
     Active Substance: ELETRIPTAN HYDROBROMIDE
     Indication: MIGRAINE
     Route: 065
  5. REMICADE [Suspect]
     Active Substance: INFLIXIMAB
     Indication: ARTHRITIS
     Route: 042
  6. SYNTHROID [Concomitant]
     Active Substance: LEVOTHYROXINE SODIUM
     Indication: THYROID DISORDER
     Route: 065
     Dates: start: 1968
  7. TRIAMTERENE. [Concomitant]
     Active Substance: TRIAMTERENE
     Indication: FLUID RETENTION
     Route: 065
  8. METOPROLOL [Concomitant]
     Active Substance: METOPROLOL
     Indication: PALPITATIONS
     Route: 065
     Dates: start: 2010
  9. PROMETHAZINE [Concomitant]
     Active Substance: PROMETHAZINE\PROMETHAZINE HYDROCHLORIDE
     Indication: MIGRAINE
     Route: 065
  10. TRIAMTERENE. [Concomitant]
     Active Substance: TRIAMTERENE
     Indication: INFLAMMATION
     Route: 065
  11. LORAZEPAM. [Concomitant]
     Active Substance: LORAZEPAM
     Indication: NAUSEA
     Route: 065

REACTIONS (4)
  - Anxiety [Not Recovered/Not Resolved]
  - Frustration [Not Recovered/Not Resolved]
  - Palpitations [Not Recovered/Not Resolved]
  - Anger [Not Recovered/Not Resolved]

NARRATIVE: CASE EVENT DATE: 20150329
